FAERS Safety Report 9530616 (Version 1)
Quarter: 2013Q3

REPORT INFORMATION
  Report Type: Spontaneous
  Country: DE (occurrence: DE)
  Receive Date: 20130918
  Receipt Date: 20130918
  Transmission Date: 20140515
  Serious: Yes (Other)
  Sender: FDA-Public Use
  Company Number: DE-RANBAXY-2013R1-72998

PATIENT
  Age: 54 Year
  Sex: Female
  Weight: 65 kg

DRUGS (5)
  1. DOXYCYCLINE [Suspect]
     Indication: BORRELIA INFECTION
     Dosage: UNK
     Route: 048
     Dates: start: 20130727, end: 20130811
  2. QUETIAPIN [Concomitant]
     Indication: BIPOLAR DISORDER
     Dosage: UNK
     Route: 048
  3. DULOXETIN [Concomitant]
     Indication: BIPOLAR DISORDER
     Dosage: UNK
     Route: 048
  4. BUPROPION [Concomitant]
     Indication: BIPOLAR DISORDER
     Dosage: UNK
     Route: 048
  5. BISOPROLOL [Concomitant]
     Indication: TACHYCARDIA
     Dosage: UNK
     Route: 048

REACTIONS (2)
  - Coagulopathy [Recovering/Resolving]
  - Haematoma [Recovering/Resolving]
